FAERS Safety Report 8765644 (Version 1)
Quarter: 2012Q4

REPORT INFORMATION
  Report Type: 
  Country: US (occurrence: US)
  Receive Date: 20120903
  Receipt Date: 20120903
  Transmission Date: 20130627
  Serious: Yes (Other)
  Sender: FDA-Public Use
  Company Number: PHEH2012US016995

PATIENT
  Sex: Female

DRUGS (3)
  1. FORADIL [Suspect]
     Dosage: UNK
  2. SPIRIVA [Suspect]
     Dosage: UNK UKN, UNK
  3. RESTASIS [Suspect]
     Dosage: UNK UKN, UNK

REACTIONS (2)
  - Chronic obstructive pulmonary disease [Unknown]
  - Alopecia [Unknown]
